FAERS Safety Report 10341252 (Version 1)
Quarter: 2014Q3

REPORT INFORMATION
  Report Type: Spontaneous
  Country: GB (occurrence: GB)
  Receive Date: 20140725
  Receipt Date: 20140725
  Transmission Date: 20150326
  Serious: Yes (Other)
  Sender: FDA-Public Use
  Company Number: PHHY2014GB088142

PATIENT
  Age: 81 Year
  Sex: Female

DRUGS (3)
  1. DONEPEZIL [Suspect]
     Active Substance: DONEPEZIL
     Dosage: 10 MG, QD AT BEDTIME
     Route: 048
  2. ANTIHISTAMINES [Suspect]
     Active Substance: ANTIHISTAMINES NOS
  3. IBUPROFEN. [Suspect]
     Active Substance: IBUPROFEN

REACTIONS (2)
  - Malaise [Recovered/Resolved]
  - Drug interaction [Recovered/Resolved]
